FAERS Safety Report 26082714 (Version 2)
Quarter: 2025Q4

REPORT INFORMATION
  Report Type: Spontaneous
  Country: US (occurrence: US)
  Receive Date: 20251124
  Receipt Date: 20251208
  Transmission Date: 20260118
  Serious: No
  Sender: ROCHE
  Company Number: US-ROCHE-10000440406

PATIENT
  Sex: Male
  Weight: 20.87 kg

DRUGS (2)
  1. XOLAIR [Suspect]
     Active Substance: OMALIZUMAB
     Indication: Food allergy
     Dosage: RECEIVES TWO 150MG INJECTIONS
     Route: 058
     Dates: start: 202507
  2. XOLAIR [Suspect]
     Active Substance: OMALIZUMAB

REACTIONS (2)
  - Product storage error [Unknown]
  - No adverse event [Unknown]
